FAERS Safety Report 8201485-5 (Version None)
Quarter: 2012Q1

REPORT INFORMATION
  Report Type: 
  Country: None (occurrence: None)
  Receive Date: 20120312
  Receipt Date: 20120229
  Transmission Date: 20120608
  Serious: Yes (Other)
  Sender: FDA-Public Use
  Company Number: US-BAYER-2011-123067

PATIENT
  Age: 81 Year
  Sex: Male
  Weight: 82.1 kg

DRUGS (22)
  1. COREG [Concomitant]
  2. RIVAROXABAN [Suspect]
     Indication: THROMBOSIS PROPHYLAXIS
     Dosage: 10 MG, QD
     Route: 048
     Dates: start: 20110928, end: 20110929
  3. NORVASC [Concomitant]
  4. FERROUS GLUCONATE [Concomitant]
  5. LISINOPRIL [Concomitant]
  6. VITAMIN TAB [Concomitant]
  7. FORTAZ [Concomitant]
  8. FLAXSEED OIL [Concomitant]
  9. PLAVIX [Suspect]
     Indication: ANTIPLATELET THERAPY
     Dosage: 75 MG,TABLETS
     Route: 048
     Dates: start: 20110926, end: 20111019
  10. MIRALAX [Concomitant]
  11. ZOCOR [Concomitant]
  12. ZOFRAN [Concomitant]
  13. APAP TAB [Concomitant]
  14. ASPIRIN [Suspect]
     Indication: ANTIPLATELET THERAPY
     Dosage: 81 MG, TABLETS
     Route: 048
     Dates: start: 20110926, end: 20111019
  15. LOVENOX [Suspect]
     Indication: THROMBOSIS PROPHYLAXIS
     Dosage: 30 MG, BID
     Route: 058
     Dates: start: 20110926, end: 20110927
  16. PEPCID [Concomitant]
  17. LANTUS [Concomitant]
  18. VITAMIN B COMPLEX CAP [Concomitant]
  19. SODIUM CHLORIDE [Concomitant]
  20. PROSCAR [Concomitant]
  21. NOVOLOG [Concomitant]
  22. FISH OIL [Concomitant]

REACTIONS (2)
  - DEEP VEIN THROMBOSIS [None]
  - PRODUCT QUALITY ISSUE [None]
